FAERS Safety Report 9387300 (Version 1)
Quarter: 2013Q3

REPORT INFORMATION
  Report Type: Spontaneous
  Country: IT (occurrence: IT)
  Receive Date: 20130708
  Receipt Date: 20130708
  Transmission Date: 20140515
  Serious: Yes (Other)
  Sender: FDA-Public Use
  Company Number: IT-JNJFOC-20130618537

PATIENT
  Age: 64 Year
  Sex: Female

DRUGS (3)
  1. RISPERDAL [Suspect]
     Indication: SELF INJURIOUS BEHAVIOUR
     Route: 048
     Dates: start: 20130626, end: 20130626
  2. ZYPREXA [Suspect]
     Indication: SELF INJURIOUS BEHAVIOUR
     Route: 048
     Dates: start: 20130626, end: 20130626
  3. CARBOLITHIUM [Suspect]
     Indication: SELF INJURIOUS BEHAVIOUR
     Route: 048
     Dates: start: 20130626, end: 20130626

REACTIONS (4)
  - Self injurious behaviour [Unknown]
  - Intentional overdose [Unknown]
  - Sluggishness [Unknown]
  - Sopor [Unknown]
